FAERS Safety Report 8777215 (Version 2)
Quarter: 2012Q4

REPORT INFORMATION
  Report Type: Report from Study
  Country: JP (occurrence: JP)
  Receive Date: 20120911
  Receipt Date: 20121108
  Transmission Date: 20130627
  Serious: Yes (Other)
  Sender: FDA-Public Use
  Company Number: JP-009507513-1208JPN000308

PATIENT
  Age: 62 Year
  Sex: Male
  Weight: 54 kg

DRUGS (26)
  1. PEGINTRON [Suspect]
     Indication: HEPATITIS C
     Dosage: 1.12 Microgram per kilogram, qw
     Route: 058
     Dates: start: 20120309, end: 20120309
  2. PEGINTRON [Suspect]
     Dosage: 1.31 Microgram per kilogram, qw
     Route: 058
     Dates: start: 20120316, end: 20120316
  3. PEGINTRON [Suspect]
     Dosage: 1.0 Microgram per kilogram, qw
     Route: 058
     Dates: start: 20120323, end: 20120330
  4. PEGINTRON [Suspect]
     Dosage: 0.75 Microgram per kilogram, qw
     Route: 058
     Dates: start: 20120406, end: 20120406
  5. PEGINTRON [Suspect]
     Dosage: 1.0 Microgram per kilogram, qw
     Route: 058
     Dates: start: 20120413, end: 20120413
  6. PEGINTRON [Suspect]
     Dosage: 1.2 Microgram per kilogram, qw
     Route: 058
     Dates: start: 20120420, end: 20120420
  7. PEGINTRON [Suspect]
     Dosage: 0.6 Microgram per kilogram, qw
     Route: 058
     Dates: start: 20120427, end: 20120511
  8. PEGINTRON [Suspect]
     Dosage: 1.2 Microgram per kilogram, qw
     Route: 058
     Dates: start: 20120518, end: 20120608
  9. PEGINTRON [Suspect]
     Dosage: 1.3 Microgram per kilogram, qw
     Route: 058
     Dates: start: 20120615, end: 20120706
  10. PEGINTRON [Suspect]
     Dosage: 1.5 Microgram per kilogram, qw
     Route: 058
     Dates: start: 20120713
  11. REBETOL [Suspect]
     Indication: HEPATITIS C
     Dosage: 800 mg, qd
     Route: 048
     Dates: start: 20120302, end: 20120306
  12. REBETOL [Suspect]
     Dosage: 600 mg, qd
     Route: 048
     Dates: start: 20120307, end: 20120420
  13. REBETOL [Suspect]
     Dosage: 400 mg, qd
     Route: 048
     Dates: start: 20120421, end: 20120427
  14. REBETOL [Suspect]
     Dosage: 200 mg, qd
     Route: 048
     Dates: start: 20120519, end: 20120614
  15. REBETOL [Suspect]
     Dosage: 400 mg, qd
     Route: 048
     Dates: start: 20120615, end: 20120712
  16. REBETOL [Suspect]
     Dosage: Every other day as two tablets and three tablets.
     Route: 048
     Dates: start: 20120713
  17. TELAVIC [Suspect]
     Indication: HEPATITIS C
     Dosage: 2250 mg, qd
     Route: 048
     Dates: start: 20120302, end: 20120405
  18. TELAVIC [Suspect]
     Dosage: 1500 mg, qd
     Route: 048
     Dates: start: 20120406, end: 20120427
  19. TELAVIC [Suspect]
     Dosage: 750 mg, qd
     Route: 048
     Dates: start: 20120428, end: 20120510
  20. TELAVIC [Suspect]
     Dosage: 500 mg, qd
     Route: 048
     Dates: start: 20120518, end: 20120524
  21. URSO [Concomitant]
     Indication: HEPATITIS C
     Dosage: 200 mg, qd
     Route: 048
     Dates: start: 2012, end: 20120314
  22. JANUVIA TABLETS 50MG [Concomitant]
     Indication: DIABETES MELLITUS
     Dosage: 50 mg, qd
     Route: 048
  23. ACTOS [Concomitant]
     Indication: DIABETES MELLITUS
     Dosage: 15 mg, qd
     Route: 048
  24. AMARYL [Concomitant]
     Indication: DIABETES MELLITUS
     Dosage: 6 mg, qd
     Route: 048
     Dates: end: 20120330
  25. TAKEPRON [Concomitant]
     Indication: GASTROOESOPHAGEAL REFLUX DISEASE
     Dosage: 15 mg, qd
     Route: 048
  26. GLUFAST [Concomitant]
     Indication: DIABETES MELLITUS
     Dosage: 30 mg, qd
     Route: 048
     Dates: start: 20120713

REACTIONS (4)
  - Platelet count decreased [Not Recovered/Not Resolved]
  - Hyperuricaemia [Recovered/Resolved]
  - Haemoglobin decreased [Not Recovered/Not Resolved]
  - White blood cell count decreased [Not Recovered/Not Resolved]
